FAERS Safety Report 6442534-4 (Version None)
Quarter: 2009Q4

REPORT INFORMATION
  Report Type: 
  Country: None (occurrence: None)
  Receive Date: 20091117
  Receipt Date: 20091109
  Transmission Date: 20100525
  Serious: Yes (Other)
  Sender: FDA-Public Use
  Company Number: BR-BAYER-200924042LA

PATIENT
  Age: 66 Year
  Sex: Female

DRUGS (6)
  1. BETAFERON [Suspect]
     Indication: MULTIPLE SCLEROSIS
     Dosage: TOTAL DAILY DOSE: 8 MIU
     Route: 058
     Dates: start: 20070301, end: 20091101
  2. PLAVIX [Concomitant]
     Indication: MYOCARDIAL INFARCTION
     Dosage: TOTAL DAILY DOSE: 1 DF
     Route: 048
     Dates: start: 20090201
  3. LIPITOR [Concomitant]
     Indication: MYOCARDIAL INFARCTION
     Dosage: TOTAL DAILY DOSE: 1 DF
     Route: 048
     Dates: start: 20090201
  4. CAPTOPRIL [Concomitant]
     Indication: MYOCARDIAL INFARCTION
     Dosage: 3 TABLETS DAILY
     Route: 048
     Dates: start: 20090201
  5. ATENOLOL [Concomitant]
     Indication: MYOCARDIAL INFARCTION
     Dosage: 2 TABLETS DAILY
     Route: 048
     Dates: start: 20090201
  6. GLIMEPIRIDE [Concomitant]
     Indication: DIABETES MELLITUS
     Dosage: 2 TABLET DAILY
     Route: 048
     Dates: start: 19960101

REACTIONS (4)
  - INFLUENZA [None]
  - MUSCULOSKELETAL STIFFNESS [None]
  - MYOCARDIAL INFARCTION [None]
  - PYREXIA [None]
